FAERS Safety Report 8742064 (Version 4)
Quarter: 2012Q4

REPORT INFORMATION
  Report Type: 
  Country: IT (occurrence: IT)
  Receive Date: 20120824
  Receipt Date: 20120920
  Transmission Date: 20130627
  Serious: Yes (Other)
  Sender: FDA-Public Use
  Company Number: IT-PFIZER INC-2012204441

PATIENT
  Age: 17 Year
  Sex: Male
  Weight: 55 kg

DRUGS (5)
  1. XANAX [Suspect]
     Indication: ANXIETY
     Dosage: 0.5 mg, daily
     Route: 048
     Dates: start: 20120228, end: 201203
  2. XANAX [Suspect]
     Dosage: 1 mg, daily
     Route: 048
     Dates: start: 20120309
  3. CIPRALEX [Suspect]
     Indication: PANIC ATTACK
     Dosage: 5 mg, 1x/day
     Route: 048
     Dates: start: 20120228
  4. CIPRALEX [Suspect]
     Indication: PANIC DISORDER WITH AGORAPHOBIA
     Dosage: 10 mg, 1x/day
     Route: 048
     Dates: start: 20120309, end: 20120627
  5. CIPRALEX [Suspect]
     Dosage: 5 mg, daily
     Route: 048
     Dates: start: 20120627

REACTIONS (2)
  - Off label use [Not Recovered/Not Resolved]
  - Suicidal ideation [Recovering/Resolving]
